FAERS Safety Report 25606562 (Version 2)
Quarter: 2025Q3

REPORT INFORMATION
  Report Type: Spontaneous
  Country: US (occurrence: US)
  Receive Date: 20250725
  Receipt Date: 20250801
  Transmission Date: 20251021
  Serious: No
  Sender: BIOMARIN
  Company Number: US-BIOMARINAP-US-2025-167477

PATIENT
  Sex: Male

DRUGS (1)
  1. PALYNZIQ [Suspect]
     Active Substance: PEGVALIASE-PQPZ
     Indication: Phenylketonuria

REACTIONS (7)
  - Injection site infection [Recovering/Resolving]
  - Peripheral swelling [Unknown]
  - Limb discomfort [Unknown]
  - Rash erythematous [Recovered/Resolved]
  - Injection site erythema [Unknown]
  - Pain in extremity [Unknown]
  - Injection site swelling [Recovering/Resolving]

NARRATIVE: CASE EVENT DATE: 20250701
